FAERS Safety Report 8434096-7 (Version None)
Quarter: 2012Q2

REPORT INFORMATION
  Report Type: 
  Country: None (occurrence: None)
  Receive Date: 20120613
  Receipt Date: 20120531
  Transmission Date: 20120825
  Serious: No
  Sender: FDA-Public Use
  Company Number: US-ASTRAZENECA-2011SE26595

PATIENT
  Age: 67 Year
  Sex: Male

DRUGS (2)
  1. SEROQUEL [Suspect]
     Route: 048
  2. SEROQUEL [Suspect]
     Dosage: GENERIC
     Route: 048

REACTIONS (7)
  - CONFUSIONAL STATE [None]
  - DIABETES MELLITUS [None]
  - DRUG DOSE OMISSION [None]
  - INSOMNIA [None]
  - TARDIVE DYSKINESIA [None]
  - TREMOR [None]
  - DRUG HYPERSENSITIVITY [None]
